FAERS Safety Report 9759437 (Version 1)
Quarter: 2013Q4

REPORT INFORMATION
  Report Type: Spontaneous
  Country: US (occurrence: None)
  Receive Date: 20131216
  Receipt Date: 20131216
  Transmission Date: 20140711
  Serious: Yes (Other)
  Sender: FDA-Public Use
  Company Number: 163-21880-12103715 (0)

PATIENT
  Age: 64 Year
  Sex: Female

DRUGS (1)
  1. REVLIMID(LENALIDOMIDE)(CAPSULES) [Suspect]
     Indication: CHRONIC LYMPHOCYTIC LEUKAEMIA
     Dosage: 10 MG, 21 IN 28  D, PO? ?

REACTIONS (3)
  - Fatigue [None]
  - Pain in extremity [None]
  - Local swelling [None]
